FAERS Safety Report 20767771 (Version 2)
Quarter: 2022Q4

REPORT INFORMATION
  Report Type: Spontaneous
  Country: US (occurrence: US)
  Receive Date: 20220429
  Receipt Date: 20221006
  Transmission Date: 20230112
  Serious: Yes (Hospitalization, Other)
  Sender: FDA-Public Use
  Company Number: US-AMRYT PHARMACEUTICALS DAC-AEGR005850

PATIENT
  Sex: Female
  Weight: 80 kg

DRUGS (2)
  1. MYALEPT [Suspect]
     Active Substance: METRELEPTIN
     Indication: Lipodystrophy acquired
     Dosage: 9 MILLIGRAM (1.8 ML), EVERY 12 HRS
     Route: 058
  2. BACTERIOSTATIC WATER [Concomitant]
     Active Substance: WATER
     Indication: Product used for unknown indication

REACTIONS (7)
  - Pyrexia [Unknown]
  - Blood glucose increased [Unknown]
  - Malaise [Unknown]
  - Therapy interrupted [Unknown]
  - Insurance issue [Unknown]
  - Product dose omission issue [Unknown]
  - Overdose [Unknown]
